FAERS Safety Report 8327614-0 (Version None)
Quarter: 2012Q2

REPORT INFORMATION
  Report Type: 
  Country: None (occurrence: None)
  Receive Date: 20120502
  Receipt Date: 20120424
  Transmission Date: 20120825
  Serious: Yes (Hospitalization)
  Sender: FDA-Public Use
  Company Number: US-BAYER-2011-112559

PATIENT
  Age: 23 Year
  Sex: Female
  Weight: 97.506 kg

DRUGS (5)
  1. YASMIN [Suspect]
     Indication: ACNE
     Dosage: UNK
     Dates: start: 20000101, end: 20070201
  2. CEPACOL [Concomitant]
  3. LORTAB [Concomitant]
  4. NEXIUM [Concomitant]
  5. YASMIN [Suspect]
     Indication: CONTRACEPTION

REACTIONS (8)
  - CHOLECYSTECTOMY [None]
  - PULMONARY EMBOLISM [None]
  - HEART RATE IRREGULAR [None]
  - PANCREATITIS [None]
  - ANGINA PECTORIS [None]
  - DYSPNOEA [None]
  - ATRIOVENTRICULAR BLOCK FIRST DEGREE [None]
  - PAIN [None]
